FAERS Safety Report 7440413-7 (Version None)
Quarter: 2011Q2

REPORT INFORMATION
  Report Type: 
  Country: None (occurrence: None)
  Receive Date: 20110427
  Receipt Date: 20110426
  Transmission Date: 20111010
  Serious: Yes (Hospitalization)
  Sender: FDA-Public Use
  Company Number: US-BRISTOL-MYERS SQUIBB COMPANY-15697410

PATIENT
  Age: 1 Year
  Sex: Female

DRUGS (1)
  1. ABILIFY [Suspect]
     Dosage: 1 OR 2 TABS.
     Dates: start: 20110411

REACTIONS (3)
  - DEPRESSED LEVEL OF CONSCIOUSNESS [None]
  - ACCIDENTAL EXPOSURE [None]
  - VOMITING [None]
